FAERS Safety Report 6292618-9 (Version None)
Quarter: 2009Q3

REPORT INFORMATION
  Report Type: 
  Country: None (occurrence: None)
  Receive Date: 20090731
  Receipt Date: 20090723
  Transmission Date: 20100115
  Serious: Yes (Death, Hospitalization)
  Sender: FDA-Public Use
  Company Number: FR-CELGENEUS-056-C5013-09070993

PATIENT
  Sex: Male
  Weight: 114 kg

DRUGS (16)
  1. THALIDOMIDE [Suspect]
     Indication: MULTIPLE MYELOMA
     Route: 048
     Dates: start: 20081224
  2. THALIDOMIDE [Suspect]
     Route: 048
     Dates: start: 20090610, end: 20090710
  3. MELPHALAN [Suspect]
     Indication: MULTIPLE MYELOMA
     Route: 065
     Dates: start: 20081224
  4. MELPHALAN [Suspect]
     Route: 065
     Dates: start: 20090610, end: 20090613
  5. PREDNISONE [Suspect]
     Indication: MULTIPLE MYELOMA
     Route: 065
     Dates: start: 20081224
  6. PREDNISONE [Suspect]
     Route: 065
     Dates: start: 20090610, end: 20090613
  7. TAHOR [Concomitant]
     Route: 048
     Dates: start: 19970101
  8. BISOPROLOL FUMARATE [Concomitant]
     Route: 048
     Dates: start: 19900101
  9. COTAREG [Concomitant]
     Route: 048
     Dates: start: 19970101
  10. OMIX D4 [Concomitant]
     Route: 048
     Dates: start: 19950101
  11. GLUCOPHAGE [Concomitant]
     Route: 048
     Dates: start: 19940101
  12. IXPRIM [Concomitant]
     Indication: BONE PAIN
     Route: 048
     Dates: start: 20081224
  13. KARDEGIC [Concomitant]
     Indication: THROMBOSIS PROPHYLAXIS
     Route: 048
     Dates: start: 20090219
  14. XYZAL [Concomitant]
     Route: 048
     Dates: start: 20090219
  15. COLD CREAM [Concomitant]
     Dosage: APPLICATION
     Route: 062
     Dates: start: 20090318
  16. NULYTELY [Concomitant]
     Indication: CONSTIPATION
     Dosage: SACHET
     Route: 048
     Dates: start: 20090429

REACTIONS (3)
  - CARDIAC FAILURE [None]
  - CARDIOPULMONARY FAILURE [None]
  - GAMMA-GLUTAMYLTRANSFERASE INCREASED [None]
